FAERS Safety Report 12884663 (Version 1)
Quarter: 2016Q4

REPORT INFORMATION
  Report Type: Spontaneous
  Country: US (occurrence: US)
  Receive Date: 20161026
  Receipt Date: 20161026
  Transmission Date: 20170207
  Serious: No
  Sender: FDA-Public Use
  Company Number: US-BAYER-2016-205153

PATIENT
  Age: 91 Year
  Sex: Female
  Weight: 48.98 kg

DRUGS (3)
  1. DESOXYN [Concomitant]
     Active Substance: METHAMPHETAMINE HYDROCHLORIDE
  2. APIXABAN [Concomitant]
     Active Substance: APIXABAN
  3. MIRALAX [Suspect]
     Active Substance: POLYETHYLENE GLYCOL 3350
     Indication: GASTROINTESTINAL DISORDER
     Dosage: 1 DF, QD, SINCE 1.5-2 YEARS
     Route: 048

REACTIONS (1)
  - Product use issue [Unknown]
